FAERS Safety Report 5995139-3 (Version None)
Quarter: 2008Q4

REPORT INFORMATION
  Report Type: 
  Country: None (occurrence: None)
  Receive Date: 20081212
  Receipt Date: 20081203
  Transmission Date: 20090506
  Serious: Yes (Hospitalization, Other)
  Sender: FDA-Public Use
  Company Number: PHHY2008AR30746

PATIENT
  Age: 34 Year
  Sex: Male

DRUGS (2)
  1. CLOZAPINE [Suspect]
     Indication: ANXIETY DISORDER
     Dosage: 100MG/DAILY SPLITTED INTO THREE INTAKES
  2. ALPRAZOLAM [Concomitant]
     Route: 060

REACTIONS (6)
  - COMA [None]
  - DEPRESSED LEVEL OF CONSCIOUSNESS [None]
  - MECHANICAL VENTILATION [None]
  - NEUROLEPTIC MALIGNANT SYNDROME [None]
  - NEUTROPENIA [None]
  - PNEUMONIA [None]
